FAERS Safety Report 7898772-7 (Version None)
Quarter: 2011Q4

REPORT INFORMATION
  Report Type: 
  Country: None (occurrence: None)
  Receive Date: 20111107
  Receipt Date: 20101129
  Transmission Date: 20120403
  Serious: No
  Sender: FDA-Public Use
  Company Number: US-ABBOTT-10P-163-0650465-00

PATIENT
  Sex: Male
  Weight: 97.61 kg

DRUGS (1)
  1. TRICOR [Suspect]
     Indication: HYPERCHOLESTEROLAEMIA
     Dates: start: 20080101

REACTIONS (1)
  - MUSCLE SPASMS [None]
